FAERS Safety Report 5578418-3 (Version None)
Quarter: 2007Q4

REPORT INFORMATION
  Report Type: 
  Country: None (occurrence: None)
  Receive Date: 20071231
  Receipt Date: 20071220
  Transmission Date: 20080405
  Serious: Yes (Other)
  Sender: FDA-Public Use
  Company Number: US-PFIZER INC-2007107529

PATIENT
  Sex: Female
  Weight: 46.818 kg

DRUGS (6)
  1. LYRICA [Suspect]
     Indication: FIBROMYALGIA
     Route: 048
  2. ADVIL PM [Interacting]
  3. EXCEDRIN (MIGRAINE) [Concomitant]
  4. SYNTHROID [Concomitant]
  5. TIZANIDINE HCL [Concomitant]
  6. OXYCODONE HCL [Concomitant]

REACTIONS (4)
  - DRUG INTERACTION [None]
  - FEELING ABNORMAL [None]
  - INSOMNIA [None]
  - PHOTOPHOBIA [None]
